FAERS Safety Report 4964277-6 (Version None)
Quarter: 2006Q2

REPORT INFORMATION
  Report Type: 
  Country: None (occurrence: None)
  Receive Date: 20060406
  Receipt Date: 20060329
  Transmission Date: 20061013
  Serious: Yes (Hospitalization, Other)
  Sender: FDA-Public Use
  Company Number: PHBS2006JP04911

PATIENT
  Age: 27 Year
  Sex: Female
  Weight: 60 kg

DRUGS (4)
  1. METOPROLOL TARTRATE [Suspect]
     Indication: LONG QT SYNDROME CONGENITAL
     Dosage: 120 MG/DAY
     Route: 048
     Dates: start: 20030101, end: 20040515
  2. FLECAINIDE ACETATE [Concomitant]
  3. LIDOCAINE [Concomitant]
     Indication: LONG QT SYNDROME CONGENITAL
     Dates: start: 20040509, end: 20040515
  4. MEXILETINE HYDROCHLORIDE [Concomitant]
     Indication: LONG QT SYNDROME CONGENITAL
     Dosage: 300 MG, UNK
     Route: 048
     Dates: start: 20040510

REACTIONS (2)
  - BRADYCARDIA [None]
  - SYNCOPE [None]
